FAERS Safety Report 25811862 (Version 1)
Quarter: 2025Q3

REPORT INFORMATION
  Report Type: Spontaneous
  Country: US (occurrence: None)
  Receive Date: 20250916
  Receipt Date: 20250916
  Transmission Date: 20251020
  Serious: Yes (Other)
  Sender: FDA-CTU
  Company Number: None

PATIENT
  Age: 48 Year
  Sex: Male
  Weight: 167.5 kg

DRUGS (1)
  1. RINVOQ [Suspect]
     Active Substance: UPADACITINIB
     Indication: Crohn^s disease
     Dosage: 15 MG DAILY ORAL
     Route: 048
     Dates: start: 20250821, end: 20250913

REACTIONS (5)
  - Muscle tightness [None]
  - Dyspnoea [None]
  - Blood creatinine increased [None]
  - Urine output decreased [None]
  - Diarrhoea [None]

NARRATIVE: CASE EVENT DATE: 20250910
